FAERS Safety Report 16537413 (Version 7)
Quarter: 2020Q1

REPORT INFORMATION
  Report Type: Report from Study
  Country: None (occurrence: JP)
  Receive Date: 20190707
  Receipt Date: 20200217
  Transmission Date: 20200409
  Serious: Yes (Hospitalization)
  Sender: FDA-Public Use
  Company Number: JP-ABBVIE-18K-087-2232775-00

PATIENT
  Age: 58 Year
  Sex: Male
  Weight: 52 kg

DRUGS (8)
  1. DUODOPA [Suspect]
     Active Substance: CARBIDOPA\LEVODOPA
     Dosage: MD: 8.2 ML, CD: 2.8 ML/HR X 16 HR
     Route: 050
     Dates: start: 20171002, end: 20190723
  2. AMANTADINE. [Concomitant]
     Active Substance: AMANTADINE HYDROCHLORIDE
     Dosage: THE AMOUNT OF LEVODOPA CONVERTED TO 16-HOUR DOSE DURING DAYTIME WAS 300 MG.
     Route: 048
  3. ROTIGOTINE [Concomitant]
     Active Substance: ROTIGOTINE
     Indication: PARKINSON^S DISEASE
     Route: 048
  4. AMANTADINE. [Concomitant]
     Active Substance: AMANTADINE HYDROCHLORIDE
     Indication: PARKINSON^S DISEASE
     Dosage: THE AMOUNT OF LEVODOPA CONVERTED TO 16-HOUR DOSE DURING DAYTIME WAS 2.5 MG.
     Route: 048
  5. AMANTADINE. [Concomitant]
     Active Substance: AMANTADINE HYDROCHLORIDE
     Route: 048
  6. DUODOPA [Suspect]
     Active Substance: CARBIDOPA\LEVODOPA
     Indication: PARKINSON^S DISEASE
     Route: 050
     Dates: start: 20170902, end: 2017
  7. DUODOPA [Suspect]
     Active Substance: CARBIDOPA\LEVODOPA
     Dosage: MD: 6 ML?CD: 2.5 ML/HOUR ? 16 HOURS
     Route: 050
     Dates: start: 20190724
  8. TRIHEXYPHENIDYL HYDROCHLORIDE. [Concomitant]
     Active Substance: TRIHEXYPHENIDYL HYDROCHLORIDE
     Indication: PARKINSON^S DISEASE
     Route: 048
     Dates: end: 20190702

REACTIONS (7)
  - Freezing phenomenon [Recovering/Resolving]
  - Foot deformity [Unknown]
  - Mobility decreased [Unknown]
  - Musculoskeletal stiffness [Unknown]
  - Incorrect route of product administration [Unknown]
  - Dyskinesia [Recovering/Resolving]
  - Fall [Recovering/Resolving]

NARRATIVE: CASE EVENT DATE: 20180116
